FAERS Safety Report 25799739 (Version 1)
Quarter: 2025Q3

REPORT INFORMATION
  Report Type: Spontaneous
  Country: GB (occurrence: GB)
  Receive Date: 20250914
  Receipt Date: 20250914
  Transmission Date: 20251021
  Serious: Yes (Other)
  Sender: DEXCEL LTD.
  Company Number: None

PATIENT
  Age: 61 Year
  Sex: Female
  Weight: 52 kg

DRUGS (9)
  1. OMEPRAZOLE [Suspect]
     Active Substance: OMEPRAZOLE
     Indication: Ill-defined disorder
     Dosage: TAKE ONE DAILY WHILST ON STEROIDS
     Dates: start: 20250107
  2. IBUPROFEN [Concomitant]
     Active Substance: IBUPROFEN
     Indication: Ill-defined disorder
     Dates: start: 20231121
  3. TACROLIMUSTACROLIMUS (Specific Substance SUB5101) [Concomitant]
     Indication: Ill-defined disorder
     Dates: start: 20231121
  4. ACYCLOVIR [Concomitant]
     Active Substance: ACYCLOVIR
     Indication: Ill-defined disorder
     Dates: start: 20240308
  5. EVACALEVACAL D3 CHEWABLE (Specific MP Group PGR5425202) [Concomitant]
     Indication: Ill-defined disorder
     Dates: start: 20250107
  6. CLINITAS CARBOMERCARBOMER (Specific Substance SUB6814) [Concomitant]
     Indication: Ill-defined disorder
     Dates: start: 20250109
  7. MYCOPHENOLATE MOFETILMYCOPHENOLATE MOFETIL (Specific Substance Vari... [Concomitant]
     Indication: Ill-defined disorder
     Dates: start: 20250109
  8. ACETAMINOPHEN [Concomitant]
     Active Substance: ACETAMINOPHEN
     Indication: Ill-defined disorder
     Dates: start: 20250109
  9. PREDNISOLONEPREDNISOLONE (Specific Substance SUB283) [Concomitant]
     Indication: Ill-defined disorder
     Dates: start: 20250409

REACTIONS (1)
  - Subacute cutaneous lupus erythematosus [Recovered/Resolved]
